FAERS Safety Report 22861033 (Version 6)
Quarter: 2023Q4

REPORT INFORMATION
  Report Type: Report from Study
  Country: US (occurrence: US)
  Receive Date: 20230824
  Receipt Date: 20231226
  Transmission Date: 20240109
  Serious: Yes (Other)
  Sender: FDA-Public Use
  Company Number: US-TAKEDA-2023TUS021560

PATIENT
  Sex: Female
  Weight: 117 kg

DRUGS (9)
  1. HUMAN IMMUNOGLOBULIN G [Suspect]
     Active Substance: HUMAN IMMUNOGLOBULIN G
     Indication: Selective IgG subclass deficiency
     Dosage: 200 MILLIGRAM/KILOGRAM, Q2WEEKS
     Route: 058
     Dates: start: 20230210
  2. LORATADINE [Suspect]
     Active Substance: LORATADINE
     Indication: Product used for unknown indication
     Dosage: UNK
     Route: 065
  3. ACETAMINOPHEN [Concomitant]
     Active Substance: ACETAMINOPHEN
     Dosage: UNK
  4. EPINEPHRINE [Concomitant]
     Active Substance: EPINEPHRINE
     Dosage: UNK
  5. CLARITIN [Concomitant]
     Active Substance: LORATADINE
     Dosage: UNK
  6. DIPHENHYDRAMINE HYDROCHLORIDE [Concomitant]
     Active Substance: DIPHENHYDRAMINE HYDROCHLORIDE
     Dosage: UNK
  7. Lmx [Concomitant]
     Dosage: UNK
  8. TRIAMCINOLONE ACETONIDE [Concomitant]
     Active Substance: TRIAMCINOLONE ACETONIDE
     Dosage: UNK
  9. CYCLOBENZAPRINE HYDROCHLORIDE [Concomitant]
     Active Substance: CYCLOBENZAPRINE HYDROCHLORIDE
     Dosage: UNK

REACTIONS (30)
  - Neuropathy peripheral [Unknown]
  - Joint swelling [Recovered/Resolved]
  - Respiratory tract congestion [Recovering/Resolving]
  - Skin discolouration [Unknown]
  - Arthritis [Recovered/Resolved]
  - Infusion site exfoliation [Unknown]
  - Infusion site rash [Unknown]
  - Infusion site irritation [Unknown]
  - Infusion site hypersensitivity [Recovering/Resolving]
  - Treatment noncompliance [Unknown]
  - Dry eye [Recovered/Resolved]
  - Mastitis [Unknown]
  - Needle issue [Unknown]
  - Insurance issue [Unknown]
  - Nipple pain [Recovered/Resolved]
  - Weight increased [Unknown]
  - Infusion site discolouration [Unknown]
  - Decreased appetite [Unknown]
  - Blood pressure increased [Unknown]
  - Somnolence [Unknown]
  - Chills [Unknown]
  - Headache [Unknown]
  - Infusion site pruritus [Recovering/Resolving]
  - Infusion site pain [Unknown]
  - Fatigue [Unknown]
  - Arthralgia [Recovering/Resolving]
  - Nausea [Unknown]
  - Pruritus [Unknown]
  - Product use issue [Unknown]
  - Product dose omission issue [Unknown]
